FAERS Safety Report 7874821-7 (Version None)
Quarter: 2011Q4

REPORT INFORMATION
  Report Type: 
  Country: None (occurrence: None)
  Receive Date: 20111031
  Receipt Date: 20111020
  Transmission Date: 20120403
  Serious: Yes (Life-Threatening)
  Sender: FDA-Public Use
  Company Number: FR-JNJFOC-20111009440

PATIENT
  Age: 63 Year
  Sex: Female

DRUGS (5)
  1. REMICADE [Suspect]
     Indication: SPONDYLOARTHROPATHY
     Dosage: EVERY 6 TO 8 WEEKS
     Route: 042
     Dates: start: 20090327, end: 20101228
  2. ENBREL [Suspect]
     Indication: SPONDYLOARTHROPATHY
     Route: 058
     Dates: start: 20070629, end: 20080620
  3. HUMIRA [Suspect]
     Indication: SPONDYLOARTHROPATHY
     Route: 058
     Dates: start: 20080620, end: 20081001
  4. FLURBIPROFEN [Concomitant]
     Indication: SPONDYLOARTHROPATHY
     Dosage: 100 TO 300 MG
     Route: 048
     Dates: start: 20100101, end: 20101201
  5. HUMIRA [Suspect]
     Route: 058
     Dates: end: 20090301

REACTIONS (1)
  - RECTAL CANCER [None]
